FAERS Safety Report 10244800 (Version 1)
Quarter: 2014Q2

REPORT INFORMATION
  Report Type: Spontaneous
  Country: US (occurrence: US)
  Receive Date: 20140618
  Receipt Date: 20140618
  Transmission Date: 20141212
  Serious: Yes (Other)
  Sender: FDA-Public Use
  Company Number: US-JNJFOC-20140606544

PATIENT
  Age: 63 Year
  Sex: Male
  Weight: 86.18 kg

DRUGS (3)
  1. XARELTO [Suspect]
     Indication: PERIPHERAL EMBOLISM
     Route: 048
     Dates: start: 20140417, end: 201405
  2. XARELTO [Suspect]
     Indication: PERIPHERAL EMBOLISM
     Route: 048
     Dates: start: 201405
  3. VITAMIN B [Concomitant]
     Route: 065

REACTIONS (2)
  - Neuropathy peripheral [Not Recovered/Not Resolved]
  - Inappropriate schedule of drug administration [Unknown]
